FAERS Safety Report 8017403-9 (Version None)
Quarter: 2012Q1

REPORT INFORMATION
  Report Type: 
  Country: None (occurrence: None)
  Receive Date: 20120102
  Receipt Date: 20111219
  Transmission Date: 20120608
  Serious: Yes (Death)
  Sender: FDA-Public Use
  Company Number: US-PFIZER INC-2011310649

PATIENT
  Age: 14 Year
  Sex: Male

DRUGS (13)
  1. MELOXICAM [Suspect]
     Route: 048
  2. QUETIAPINE [Suspect]
     Route: 048
  3. MORPHINE SULFATE [Suspect]
     Route: 048
  4. CODEINE [Suspect]
     Route: 048
  5. PENICILLIN NOS [Suspect]
     Route: 048
  6. HYDROCODONE [Suspect]
     Route: 048
  7. LISDEXAMFETAMINE [Suspect]
     Route: 048
  8. VALPROIC ACID [Suspect]
     Route: 048
  9. DIPHENHYDRAMINE HCL [Suspect]
     Route: 048
  10. AMPHETAMINES [Suspect]
     Route: 048
  11. ARIPIPRAZOLE [Suspect]
     Route: 048
  12. SERTRALINE HYDROCHLORIDE [Suspect]
     Route: 048
  13. CLONIDINE [Suspect]
     Route: 048

REACTIONS (3)
  - RESPIRATORY ARREST [None]
  - CARDIAC ARREST [None]
  - DEATH [None]
